FAERS Safety Report 13095177 (Version 2)
Quarter: 2017Q2

REPORT INFORMATION
  Report Type: Spontaneous
  Country: US (occurrence: US)
  Receive Date: 20170107
  Receipt Date: 20170518
  Transmission Date: 20170830
  Serious: No
  Sender: FDA-Public Use
  Company Number: US-TEVA-724687ACC

PATIENT
  Age: 55 Year
  Sex: Male

DRUGS (13)
  1. MULTIVITAMIN [Concomitant]
     Active Substance: VITAMINS
  2. OXYBUTYNIN [Concomitant]
     Active Substance: OXYBUTYNIN
  3. PREDNISONE. [Concomitant]
     Active Substance: PREDNISONE
  4. AMANTADINE. [Concomitant]
     Active Substance: AMANTADINE HYDROCHLORIDE
  5. FLONASE [Concomitant]
     Active Substance: FLUTICASONE PROPIONATE
  6. TIZANIDINE. [Concomitant]
     Active Substance: TIZANIDINE
  7. BACLOFEN. [Concomitant]
     Active Substance: BACLOFEN
  8. MAGNESIUM [Concomitant]
     Active Substance: MAGNESIUM
  9. ZYRTEC [Concomitant]
     Active Substance: CETIRIZINE HYDROCHLORIDE
  10. VITAMIN D [Concomitant]
     Active Substance: CHOLECALCIFEROL
  11. OMEGA 3KRILL [Concomitant]
  12. COPAXONE [Suspect]
     Active Substance: GLATIRAMER ACETATE
     Indication: MULTIPLE SCLEROSIS
     Route: 058
     Dates: start: 20140502
  13. LISINOPRIL. [Concomitant]
     Active Substance: LISINOPRIL

REACTIONS (3)
  - Injection site reaction [Not Recovered/Not Resolved]
  - Hypokinesia [Not Recovered/Not Resolved]
  - Fall [Not Recovered/Not Resolved]

NARRATIVE: CASE EVENT DATE: 201703
